FAERS Safety Report 9475938 (Version 2)
Quarter: 2013Q4

REPORT INFORMATION
  Report Type: Spontaneous
  Country: FR (occurrence: None)
  Receive Date: 20130821
  Receipt Date: 20131202
  Transmission Date: 20140711
  Serious: Yes (Hospitalization)
  Sender: FDA-Public Use
  Company Number: AXC-2013-000392

PATIENT
  Age: 48 Year
  Sex: Female

DRUGS (2)
  1. PYLERA [Suspect]
     Indication: HELICOBACTER INFECTION
     Dosage: 3 DF, QID, ORAL
     Route: 048
     Dates: start: 20130717
  2. LEVOTHYROX (LEVOTHYROXINE SODIUM) [Concomitant]

REACTIONS (3)
  - Abdominal pain upper [None]
  - Gastric cancer [None]
  - Abdominal pain upper [None]
